FAERS Safety Report 9558842 (Version 3)
Quarter: 2014Q1

REPORT INFORMATION
  Report Type: Spontaneous
  Country: US (occurrence: US)
  Receive Date: 20130926
  Receipt Date: 20140113
  Transmission Date: 20141002
  Serious: Yes (Other)
  Sender: FDA-Public Use
  Company Number: US-JNJFOC-20130909621

PATIENT
  Sex: Male
  Weight: 111.13 kg

DRUGS (2)
  1. ROGAINE EXTRA STRENGTH FOR MEN ES FOAM UNSCENTED [Suspect]
     Route: 061
  2. ROGAINE EXTRA STRENGTH FOR MEN ES FOAM UNSCENTED [Suspect]
     Indication: ALOPECIA
     Dosage: HALF OF A GOLF BALL SIZE
     Route: 061

REACTIONS (8)
  - Skin lesion [Recovering/Resolving]
  - Neurofibroma [Unknown]
  - Actinic keratosis [Unknown]
  - Follicle centre lymphoma, follicular grade I, II, III [Unknown]
  - B-cell unclassifiable lymphoma low grade [Unknown]
  - B-cell lymphoma [Unknown]
  - Inappropriate schedule of drug administration [Unknown]
  - Pruritus [Recovering/Resolving]
